FAERS Safety Report 25361375 (Version 2)
Quarter: 2025Q3

REPORT INFORMATION
  Report Type: Report from Study
  Country: US (occurrence: US)
  Receive Date: 20250527
  Receipt Date: 20250804
  Transmission Date: 20251020
  Serious: Yes (Other)
  Sender: TAKEDA
  Company Number: US-TAKEDA-2025TUS028920

PATIENT
  Sex: Female

DRUGS (24)
  1. PONATINIB [Suspect]
     Active Substance: PONATINIB
     Indication: Acute lymphocytic leukaemia
     Dosage: 15 MILLIGRAM, QD
  2. PONATINIB [Suspect]
     Active Substance: PONATINIB
     Dosage: 15 MILLIGRAM, QD
  3. PONATINIB [Suspect]
     Active Substance: PONATINIB
     Dosage: 15 MILLIGRAM, QD
  4. PONATINIB [Suspect]
     Active Substance: PONATINIB
     Dosage: 15 MILLIGRAM, QD
  5. PONATINIB [Suspect]
     Active Substance: PONATINIB
     Dosage: 15 MILLIGRAM, QD
  6. GABAPENTIN [Suspect]
     Active Substance: GABAPENTIN
     Indication: Product used for unknown indication
  7. ADDERALL [Concomitant]
     Active Substance: AMPHETAMINE ASPARTATE\AMPHETAMINE SULFATE\DEXTROAMPHETAMINE SACCHARATE\DEXTROAMPHETAMINE SULFATE
  8. ALENDRONATE SODIUM [Concomitant]
     Active Substance: ALENDRONATE SODIUM
  9. ALLOPURINOL [Concomitant]
     Active Substance: ALLOPURINOL
  10. LEVOTHYROXINE SODIUM [Concomitant]
     Active Substance: LEVOTHYROXINE SODIUM
  11. LINZESS [Concomitant]
     Active Substance: LINACLOTIDE
  12. LISINOPRIL [Concomitant]
     Active Substance: LISINOPRIL
  13. MONTELUKAST SODIUM [Concomitant]
     Active Substance: MONTELUKAST SODIUM
  14. PROTONIX [Concomitant]
     Active Substance: PANTOPRAZOLE SODIUM
  15. ROSUVASTATIN CALCIUM [Concomitant]
     Active Substance: ROSUVASTATIN CALCIUM
  16. STIOLTO RESPIMAT [Concomitant]
     Active Substance: OLODATEROL HYDROCHLORIDE\TIOTROPIUM BROMIDE MONOHYDRATE
  17. VITAMIN B12 [Concomitant]
     Active Substance: CYANOCOBALAMIN
  18. BIOTIN [Concomitant]
     Active Substance: BIOTIN
  19. CRANBERRY [Concomitant]
     Active Substance: CRANBERRY
  20. VITAMIN D3 [Concomitant]
     Active Substance: CHOLECALCIFEROL
  21. ASPIRIN [Concomitant]
     Active Substance: ASPIRIN
  22. TYLENOL [Concomitant]
     Active Substance: ACETAMINOPHEN
  23. XANAX [Concomitant]
     Active Substance: ALPRAZOLAM
  24. ZOLPIDEM TARTRATE [Concomitant]
     Active Substance: ZOLPIDEM TARTRATE

REACTIONS (13)
  - Demyelination [Unknown]
  - Product dose omission issue [Unknown]
  - Product dose omission in error [Unknown]
  - Off label use [Unknown]
  - Diplopia [Unknown]
  - Illness [Unknown]
  - Sinusitis [Unknown]
  - Chronic obstructive pulmonary disease [Unknown]
  - Cerebral disorder [Unknown]
  - Visual impairment [Unknown]
  - Alopecia [Unknown]
  - Weight increased [Unknown]
  - Upper respiratory tract infection [Unknown]
